FAERS Safety Report 5738236-X (Version None)
Quarter: 2008Q2

REPORT INFORMATION
  Report Type: 
  Country: None (occurrence: None)
  Receive Date: 20080514
  Receipt Date: 20071129
  Transmission Date: 20081010
  Serious: No
  Sender: FDA-Public Use
  Company Number: US-BOEHRINGER INGELHEIM GMBH, GERMANY-2006-BP-14399BP

PATIENT
  Sex: Male

DRUGS (7)
  1. MIRAPEX [Suspect]
     Indication: PARKINSON'S DISEASE
     Dates: start: 19990401, end: 20051001
  2. SINEMET CR [Concomitant]
  3. ZOCOR [Concomitant]
  4. CARBIDOPA AND LEVODOPA [Concomitant]
  5. MOBIC [Concomitant]
     Indication: PAIN
  6. PREVACID [Concomitant]
  7. PERMAX [Concomitant]
     Dates: start: 20051001

REACTIONS (9)
  - COMPULSIVE SHOPPING [None]
  - DEPRESSION [None]
  - ECONOMIC PROBLEM [None]
  - EMOTIONAL DISTRESS [None]
  - HYPERPHAGIA [None]
  - INJURY [None]
  - LIBIDO INCREASED [None]
  - PATHOLOGICAL GAMBLING [None]
  - WEIGHT INCREASED [None]
